FAERS Safety Report 4939532-6 (Version None)
Quarter: 2006Q1

REPORT INFORMATION
  Report Type: 
  Country: None (occurrence: None)
  Receive Date: 20060306
  Receipt Date: 20060223
  Transmission Date: 20060701
  Serious: Yes (Other)
  Sender: FDA-Public Use
  Company Number: 2006RR-01698

PATIENT
  Age: 51 Year
  Sex: Male

DRUGS (19)
  1. CIPROFLOXACIN [Suspect]
  2. LEVOTHYROXINE SODIUM [Suspect]
  3. HYDROCORTISONE [Suspect]
  4. CLOZAPINE [Suspect]
  5. VALPROIC ACID [Suspect]
  6. RANITIDINE [Suspect]
  7. FENTANYL [Suspect]
  8. ACETAMINOPHEN [Suspect]
  9. FLUCONAZOLE [Suspect]
  10. AMISULPRIDE [Concomitant]
  11. LITHIUM [Concomitant]
  12. LACTULOSE [Concomitant]
  13. MIDAZOLAM [Concomitant]
  14. PROPOFOL [Concomitant]
  15. NOREPINEPHRINE [Concomitant]
  16. POTASSIUM [Concomitant]
  17. INSULIN [Concomitant]
  18. HEPARIN [Concomitant]
  19. ENOXAPARIN SODIUM [Concomitant]

REACTIONS (1)
  - LOSS OF CONSCIOUSNESS [None]
